FAERS Safety Report 5817179-7 (Version None)
Quarter: 2008Q3

REPORT INFORMATION
  Report Type: 
  Country: None (occurrence: None)
  Receive Date: 20080721
  Receipt Date: 20080610
  Transmission Date: 20090109
  Serious: No
  Sender: FDA-Public Use
  Company Number: DL2008257

PATIENT
  Age: 33 Year
  Sex: Female

DRUGS (4)
  1. MIFEPRISTONE TABLETS, 200 MG (DANCO LABS) [Suspect]
     Indication: ABORTION INDUCED
     Dosage: 200 MG, ORAL
     Route: 048
     Dates: start: 20080411
  2. MISOPROSTOL [Suspect]
     Dosage: 800 MCG, BUCCAL
     Route: 002
     Dates: start: 20080413
  3. DOXYCYCLINE HCL [Concomitant]
  4. FERROUS SULFATE TAB [Concomitant]

REACTIONS (4)
  - ABORTION INCOMPLETE [None]
  - ANAEMIA [None]
  - HAEMORRHAGE [None]
  - MUSCLE SPASMS [None]
